FAERS Safety Report 24463257 (Version 1)
Quarter: 2024Q4

REPORT INFORMATION
  Report Type: Report from Study
  Country: US (occurrence: US)
  Receive Date: 20241018
  Receipt Date: 20241018
  Transmission Date: 20250115
  Serious: No
  Sender: ROCHE
  Company Number: US-ROCHE-3024618

PATIENT
  Age: 77 Year
  Sex: Male
  Weight: 129.0 kg

DRUGS (5)
  1. XOLAIR [Suspect]
     Active Substance: OMALIZUMAB
     Indication: Asthma
     Dosage: INJECT 150 MG SUBCUTANEOUSLY IN EACH ARM EVERY 2 WEEK, DATE OF SERVICE: 15/FEB/2022
     Route: 058
  2. XOLAIR [Suspect]
     Active Substance: OMALIZUMAB
     Indication: Asthma
  3. TESTOSTERONE [Concomitant]
     Active Substance: TESTOSTERONE
  4. PREVACID [Concomitant]
     Active Substance: LANSOPRAZOLE
  5. ATORVASTATIN [Concomitant]
     Active Substance: ATORVASTATIN

REACTIONS (2)
  - Off label use [Unknown]
  - No adverse event [Unknown]
